FAERS Safety Report 6352614 (Version 3)
Quarter: 2017Q1

REPORT INFORMATION
  Report Type: Spontaneous
  Country: DE (occurrence: DE)
  Receive Date: 20070709
  Receipt Date: 20170210
  Transmission Date: 20170429
  Serious: Yes (Death)
  Sender: FDA-Public Use
  Company Number: DE-JNJFOC-20070606764

PATIENT
  Age: 5 Year
  Sex: Male

DRUGS (2)
  1. STEROID [Concomitant]
     Active Substance: UNSPECIFIED INGREDIENT
     Route: 065
  2. ITRACONAZOLE. [Suspect]
     Active Substance: ITRACONAZOLE
     Indication: STEM CELL TRANSPLANT
     Route: 048

REACTIONS (2)
  - Drug level decreased [Fatal]
  - Candida infection [Unknown]
